FAERS Safety Report 4509072-7 (Version None)
Quarter: 2004Q4

REPORT INFORMATION
  Report Type: 
  Country: None (occurrence: None)
  Receive Date: 20041025
  Receipt Date: 20040128
  Transmission Date: 20050328
  Serious: Yes (Other)
  Sender: FDA-Public Use
  Company Number: US-JNJFOC-20030904352

PATIENT
  Age: 43 Year
  Sex: Female
  Weight: 71.2147 kg

DRUGS (6)
  1. REMICADE [Suspect]
     Indication: CROHN'S DISEASE
     Dosage: Q8 WEEKS
     Dates: start: 20010801
  2. ASACOL [Concomitant]
  3. ANTIBIOTICS (ANTIBIOTICS) [Concomitant]
  4. FLAGYL [Concomitant]
  5. FOLIC ACID [Concomitant]
  6. MP (MERCAPTOPURINE) [Concomitant]

REACTIONS (1)
  - CROHN'S DISEASE [None]
